FAERS Safety Report 10031686 (Version 1)
Quarter: 2014Q1

REPORT INFORMATION
  Report Type: Spontaneous
  Country: US (occurrence: US)
  Receive Date: 20140324
  Receipt Date: 20140324
  Transmission Date: 20141002
  Serious: No
  Sender: FDA-Public Use
  Company Number: US-PFIZER INC-2014082688

PATIENT
  Age: 90 Year
  Sex: Male
  Weight: 70.75 kg

DRUGS (2)
  1. PREGABALIN [Suspect]
     Indication: HYPOAESTHESIA
     Dosage: 100 MG, 3X/DAY
     Dates: start: 201402, end: 2014
  2. NADOLOL [Concomitant]
     Dosage: 40 MG, DAILY

REACTIONS (2)
  - Constipation [Unknown]
  - Sleep disorder [Unknown]
